FAERS Safety Report 12308861 (Version 1)
Quarter: 2016Q2

REPORT INFORMATION
  Report Type: Other
  Country: BR (occurrence: BR)
  Receive Date: 20160427
  Receipt Date: 20160427
  Transmission Date: 20160815
  Serious: Yes (Other)
  Sender: FDA-Public Use
  Company Number: BR-SHIRE-BR201604799

PATIENT
  Age: 13 Year
  Sex: Male
  Weight: 40 kg

DRUGS (3)
  1. ESCITALOPRAM OXALATE. [Suspect]
     Active Substance: ESCITALOPRAM OXALATE
     Indication: PANIC DISORDER
  2. ESCITALOPRAM OXALATE. [Suspect]
     Active Substance: ESCITALOPRAM OXALATE
     Indication: DEPRESSION
     Dosage: 20 MG (10 MG, 2 TABLETS), 1X/DAY:QD (IN THE MORNING)
     Route: 065
     Dates: start: 201511
  3. ELAPRASE [Suspect]
     Active Substance: IDURSULFASE
     Indication: MUCOPOLYSACCHARIDOSIS II
     Dosage: 18 MG (3 VIALS), 1X/WEEK
     Route: 041

REACTIONS (12)
  - Social avoidant behaviour [Unknown]
  - Oxygen consumption decreased [Unknown]
  - Vascular access complication [Unknown]
  - Condition aggravated [Unknown]
  - Pulse abnormal [Unknown]
  - Poor venous access [Recovering/Resolving]
  - Vein disorder [Unknown]
  - Depression [Not Recovered/Not Resolved]
  - Cardiac arrest [Recovered/Resolved]
  - Panic disorder [Not Recovered/Not Resolved]
  - Anxiety [Not Recovered/Not Resolved]
  - Tooth disorder [Unknown]

NARRATIVE: CASE EVENT DATE: 201511
